FAERS Safety Report 4684701-6 (Version None)
Quarter: 2005Q2

REPORT INFORMATION
  Report Type: 
  Country: None (occurrence: None)
  Receive Date: 20050603
  Receipt Date: 20050517
  Transmission Date: 20051028
  Serious: Yes (Hospitalization, Other)
  Sender: FDA-Public Use
  Company Number: US_0505117920

PATIENT
  Age: 26 Year
  Sex: Female

DRUGS (1)
  1. ZYPREXA [Suspect]

REACTIONS (9)
  - ABDOMINAL HAEMATOMA [None]
  - ARTERIAL INJURY [None]
  - HAEMOGLOBIN DECREASED [None]
  - IATROGENIC INJURY [None]
  - INTRA-ABDOMINAL HAEMORRHAGE [None]
  - OVARIAN CYST [None]
  - POST PROCEDURAL COMPLICATION [None]
  - PROCEDURAL COMPLICATION [None]
  - TACHYCARDIA [None]
